FAERS Safety Report 15407796 (Version 12)
Quarter: 2023Q1

REPORT INFORMATION
  Report Type: Report from Study
  Country: GB (occurrence: GB)
  Receive Date: 20180920
  Receipt Date: 20230306
  Transmission Date: 20230417
  Serious: Yes (Hospitalization)
  Sender: FDA-Public Use
  Company Number: GB-ROCHE-2080942

PATIENT
  Age: 49 Year
  Sex: Female

DRUGS (70)
  1. DOCETAXEL [Suspect]
     Active Substance: DOCETAXEL
     Indication: Breast cancer metastatic
     Dosage: 130 MG, EVERY 3 WEEKS, NUMBER OF CYCLE PER REGIMEN 6
     Route: 042
     Dates: start: 20150210, end: 20150708
  2. DOCETAXEL [Suspect]
     Active Substance: DOCETAXEL
     Dosage: 390 MG, EVERY 1 WEEK (130 MILLIGRAM EVERY 3 WEEKS (CUMULATIVE DOSE:266.1905 MG) NUMBER OF CYCLE REGI
     Route: 042
     Dates: start: 20150210, end: 20150708
  3. LETROZOLE [Suspect]
     Active Substance: LETROZOLE
     Indication: Breast cancer metastatic
     Dosage: 2.5 MG, 1X/DAY
     Route: 048
     Dates: start: 20150729
  4. LETROZOLE [Suspect]
     Active Substance: LETROZOLE
     Dosage: 2.5 G, 1X/DAY
     Route: 048
     Dates: start: 20150729
  5. LETROZOLE [Suspect]
     Active Substance: LETROZOLE
     Dosage: UNK
     Route: 048
     Dates: start: 20170201, end: 20170722
  6. LETROZOLE [Suspect]
     Active Substance: LETROZOLE
     Dosage: UNK
  7. PERTUZUMAB [Suspect]
     Active Substance: PERTUZUMAB
     Indication: Breast cancer metastatic
     Dosage: 420 MG, TIW (MAINTENANCE DOSE SUBSEQUENT DOSE RECEIVED ON 22/DEC/2015, 24/FEB/2016)
     Route: 042
     Dates: start: 20150204
  8. PERTUZUMAB [Suspect]
     Active Substance: PERTUZUMAB
     Dosage: 420 MG, EVERY 3 WEEKS
     Route: 042
     Dates: start: 20150209, end: 20170201
  9. PERTUZUMAB [Suspect]
     Active Substance: PERTUZUMAB
     Dosage: 840 MG, 1X/DAY (LOADING DOSE)
     Route: 042
     Dates: start: 20150209, end: 20150209
  10. PERTUZUMAB [Suspect]
     Active Substance: PERTUZUMAB
     Dosage: MAINTENANCE DOSE
     Route: 042
     Dates: start: 20150210
  11. PERTUZUMAB [Suspect]
     Active Substance: PERTUZUMAB
     Dosage: 420 MG, TIW
     Route: 040
     Dates: start: 20150304, end: 20170201
  12. ADO-TRASTUZUMAB EMTANSINE [Suspect]
     Active Substance: ADO-TRASTUZUMAB EMTANSINE
     Indication: Breast cancer metastatic
     Dosage: 240 MG, EVERY 3 WEEKS
     Route: 042
     Dates: start: 20170201, end: 20170722
  13. ADO-TRASTUZUMAB EMTANSINE [Suspect]
     Active Substance: ADO-TRASTUZUMAB EMTANSINE
     Dosage: 230 MG, EVERY 3 WEEKS
     Route: 042
     Dates: start: 20170816
  14. TRASTUZUMAB [Suspect]
     Active Substance: TRASTUZUMAB
     Indication: HER2 positive breast cancer
     Dosage: 399 MG, EVERY 3 WEEKS,
     Route: 042
     Dates: start: 20150203, end: 20150203
  15. TRASTUZUMAB [Suspect]
     Active Substance: TRASTUZUMAB
     Dosage: 504 MG SINGLE, LOADING DOSE
     Route: 042
     Dates: start: 20150209, end: 20150209
  16. TRASTUZUMAB [Suspect]
     Active Substance: TRASTUZUMAB
     Dosage: 378 MG, EVERY 3 WEEKS
     Route: 042
     Dates: start: 20150210
  17. TRASTUZUMAB [Suspect]
     Active Substance: TRASTUZUMAB
     Dosage: 378 MG EVERY 3 WEEKS, MAINTENANCE DOSE
     Route: 042
     Dates: start: 20150303, end: 20170201
  18. TRASTUZUMAB [Suspect]
     Active Substance: TRASTUZUMAB
     Dosage: 420 MG, EVERY 3 WEEKS
     Route: 042
     Dates: start: 20151111, end: 20151202
  19. TRASTUZUMAB [Suspect]
     Active Substance: TRASTUZUMAB
     Dosage: 378 MG, EVERY 3 WEEKS
     Route: 042
     Dates: start: 20151222, end: 20160113
  20. TRASTUZUMAB [Suspect]
     Active Substance: TRASTUZUMAB
     Dosage: SUBSEQUENT DOSE RECEIVED ON 11/NOV/2018
     Route: 042
     Dates: start: 20160203, end: 20160203
  21. TRASTUZUMAB [Suspect]
     Active Substance: TRASTUZUMAB
     Dosage: 378 MG, EVERY 3 WEEKS
     Route: 042
     Dates: start: 20160224, end: 20160406
  22. TRASTUZUMAB [Suspect]
     Active Substance: TRASTUZUMAB
     Dosage: 420 MG, EVERY 3 WEEKS
     Route: 042
     Dates: start: 20160427, end: 20170111
  23. TRASTUZUMAB [Suspect]
     Active Substance: TRASTUZUMAB
     Dosage: 240 MG
     Route: 042
     Dates: start: 20170201
  24. TRASTUZUMAB [Suspect]
     Active Substance: TRASTUZUMAB
     Dosage: 230 MG, EVERY 3 WEEKS
     Route: 042
     Dates: start: 20170816
  25. TRASTUZUMAB [Suspect]
     Active Substance: TRASTUZUMAB
     Dosage: 399 MG, EVERY 3 WEEKS
     Route: 042
     Dates: start: 20150203, end: 20150203
  26. TRASTUZUMAB [Suspect]
     Active Substance: TRASTUZUMAB
     Dosage: 420 MG, EVERY 3 WEEKS
     Dates: start: 20160404, end: 20170111
  27. CALCIUM CARBONATE\CHOLECALCIFEROL [Concomitant]
     Active Substance: CALCIUM CARBONATE\CHOLECALCIFEROL
     Dosage: 1.5 (0.33DAY)(PREVIOUSLY 4.5G, 1X/DAY)
     Route: 048
     Dates: start: 20151203, end: 20190813
  28. CALCIUM CARBONATE\CHOLECALCIFEROL [Concomitant]
     Active Substance: CALCIUM CARBONATE\CHOLECALCIFEROL
     Dosage: 1.5 (0.5DAY)(PREVIOUSLY 3G, 1X/DAY)
     Route: 048
     Dates: start: 20150729, end: 20151202
  29. AMOXICILLIN [Concomitant]
     Active Substance: AMOXICILLIN
     Dosage: 500MG (0.33DAY)(PREVIOUSLY 1500 MG, 1X/DAY)
     Route: 048
     Dates: start: 20160816, end: 20160821
  30. AMOXICILLIN [Concomitant]
     Active Substance: AMOXICILLIN
     Dosage: 500MG (0.33DAY)(PREVIOUSLY1500 MG, 1X/DAY)
     Route: 048
     Dates: start: 20170821, end: 20170826
  31. AMOXICILLIN [Concomitant]
     Active Substance: AMOXICILLIN
     Dosage: 500MG (0.33DAY)(PREVIOUSLY1500 MG, 1X/DAY)
     Route: 048
     Dates: start: 20161015, end: 20161023
  32. CHLORHEXIDINE GLUCONATE [Concomitant]
     Active Substance: CHLORHEXIDINE GLUCONATE
  33. AMOXICILLIN\CLAVULANATE POTASSIUM [Concomitant]
     Active Substance: AMOXICILLIN\CLAVULANATE POTASSIUM
     Indication: Product used for unknown indication
     Dosage: 500 MG
     Route: 048
     Dates: start: 20170926
  34. AMOXICILLIN\CLAVULANATE POTASSIUM [Concomitant]
     Active Substance: AMOXICILLIN\CLAVULANATE POTASSIUM
     Dosage: 500 UNK
     Route: 048
     Dates: start: 20171001, end: 20171008
  35. AMOXICILLIN\CLAVULANATE POTASSIUM [Concomitant]
     Active Substance: AMOXICILLIN\CLAVULANATE POTASSIUM
     Dosage: 500 MG, 3X/DAY
     Route: 048
     Dates: start: 20180526, end: 20180601
  36. AMOXICILLIN\CLAVULANATE POTASSIUM [Concomitant]
     Active Substance: AMOXICILLIN\CLAVULANATE POTASSIUM
     Dosage: 500 MG
     Route: 048
     Dates: start: 20190530, end: 20190606
  37. AMOXICILLIN\CLAVULANATE POTASSIUM [Concomitant]
     Active Substance: AMOXICILLIN\CLAVULANATE POTASSIUM
     Dosage: 400 MG, 2X/DAY
     Route: 065
     Dates: start: 20171030, end: 20171105
  38. MICONAZOLE NITRATE [Concomitant]
     Active Substance: MICONAZOLE NITRATE
     Indication: Rash
     Dosage: 20 MG, 2X/DAY
     Route: 061
     Dates: start: 20161129, end: 20170101
  39. DEXAMETHASONE [Concomitant]
     Active Substance: DEXAMETHASONE
     Dosage: 8 MG (0.5 DAY) (PREVIOUSLY 16MG 1XDAY)
     Route: 048
     Dates: start: 20150527, end: 20150708
  40. DEXAMETHASONE [Concomitant]
     Active Substance: DEXAMETHASONE
     Dosage: 4MG (0.5DAY) (PREVIOUSLY 8 MG, 1X/DAY)
     Route: 048
     Dates: start: 20170616, end: 20170619
  41. DEXAMETHASONE [Concomitant]
     Active Substance: DEXAMETHASONE
     Dosage: 2 MG (0.5 DAY) (PREVIOUSLY4 MG, 1X/DAY)
     Route: 048
     Dates: start: 20170620, end: 20170621
  42. DEXAMETHASONE [Concomitant]
     Active Substance: DEXAMETHASONE
     Dosage: 4 MG, 1X/DAY
     Route: 048
     Dates: start: 20170531, end: 20170602
  43. DEXAMETHASONE [Concomitant]
     Active Substance: DEXAMETHASONE
     Dosage: 8MG (0.5DAY) (PREVIOUSLY16 MG, 1X/DAY)
     Route: 048
     Dates: start: 20170616, end: 20170617
  44. DEXAMETHASONE [Concomitant]
     Active Substance: DEXAMETHASONE
     Dosage: 2 MG, 1X/DAY
     Route: 048
     Dates: start: 20170603, end: 20170604
  45. BENZYDAMINE HYDROCHLORIDE [Concomitant]
     Active Substance: BENZYDAMINE HYDROCHLORIDE
     Dosage: 10 ML, AS NEEDED MOUTHWASH
     Route: 065
     Dates: start: 20150307, end: 20150311
  46. DOXYCYCLINE [Concomitant]
     Active Substance: DOXYCYCLINE
     Indication: Dermatitis acneiform
     Dosage: 100 MG, 1X/DAY
     Route: 065
     Dates: start: 20171012, end: 20171029
  47. DOXYCYCLINE [Concomitant]
     Active Substance: DOXYCYCLINE
     Dosage: 100 UNK
     Route: 065
     Dates: start: 20171106, end: 20191019
  48. DOXYCYCLINE [Concomitant]
     Active Substance: DOXYCYCLINE
     Dosage: 100 UNK
     Route: 048
     Dates: start: 20190607
  49. DOXYCYCLINE [Concomitant]
     Active Substance: DOXYCYCLINE
     Dosage: 100 MG
     Route: 048
     Dates: start: 20150427, end: 20150608
  50. BETAMETHASONE VALERATE\FUSIDIC ACID [Concomitant]
     Active Substance: BETAMETHASONE VALERATE\FUSIDIC ACID
     Dosage: 0.1 %, AS NEEDED
     Route: 061
     Dates: start: 20151123
  51. FYBOGEL [Concomitant]
     Active Substance: HERBALS\PLANTAGO OVATA SEED
     Dosage: 3.5 G, LIQUID PO (ORAL) BID (2X/DAY)
     Route: 048
     Dates: start: 20150312, end: 20150314
  52. LANSOPRAZOLE [Concomitant]
     Active Substance: LANSOPRAZOLE
     Dosage: 30 MG, 1X/DAY
     Route: 048
     Dates: start: 20151123
  53. LANSOPRAZOLE [Concomitant]
     Active Substance: LANSOPRAZOLE
     Dosage: UNK
     Route: 048
     Dates: start: 20150306
  54. LOPERAMIDE [Concomitant]
     Active Substance: LOPERAMIDE
     Dosage: 4 MG
     Route: 048
     Dates: start: 20150306, end: 20150308
  55. METOCLOPRAMIDE [Concomitant]
     Active Substance: METOCLOPRAMIDE
     Dosage: 10MG (0.33 DAY)(PREVIOUSLY 30MG, 1XDAY)
     Route: 050
     Dates: start: 20150527, end: 20150708
  56. METOCLOPRAMIDE [Concomitant]
     Active Substance: METOCLOPRAMIDE
     Dosage: 10MG (0.33DAY)(PREVIOUSLY30MG, 1XDAY)
     Route: 048
     Dates: start: 20170510, end: 2017
  57. METOCLOPRAMIDE [Concomitant]
     Active Substance: METOCLOPRAMIDE
     Dosage: 400 MG
     Route: 065
     Dates: start: 20171001
  58. METRONIDAZOLE [Concomitant]
     Active Substance: METRONIDAZOLE
     Indication: Product used for unknown indication
     Dosage: 400 MG
     Route: 065
     Dates: start: 20171001, end: 20171008
  59. METRONIDAZOLE [Concomitant]
     Active Substance: METRONIDAZOLE
     Dosage: 500 MG
     Route: 048
     Dates: start: 20171030, end: 20171105
  60. MOVICOL [Concomitant]
     Active Substance: POLYETHYLENE GLYCOL 3350\POTASSIUM CHLORIDE\SODIUM BICARBONATE\SODIUM CHLORIDE
     Dosage: 2 OTHER
     Route: 048
     Dates: start: 20170510
  61. NAPROXEN [Concomitant]
     Active Substance: NAPROXEN
     Dosage: 250 MG, 1X/DAY
     Route: 048
     Dates: start: 20170116, end: 20170116
  62. NAPROXEN [Concomitant]
     Active Substance: NAPROXEN
     Dosage: 250 MG, AS NEEDED
     Route: 048
     Dates: start: 20141128, end: 20191015
  63. NAPROXEN [Concomitant]
     Active Substance: NAPROXEN
     Dosage: 250 MG, AS NEEDED
     Route: 048
     Dates: start: 20170802
  64. OMEPRAZOLE [Concomitant]
     Active Substance: OMEPRAZOLE
     Dosage: 20MG (0.5DAY) (PREVIOUSLY40 MG, 1X/DAY)
     Route: 048
     Dates: start: 20170531, end: 20170605
  65. OMEPRAZOLE [Concomitant]
     Active Substance: OMEPRAZOLE
     Dosage: 20 MG, 1X/DAY
     Route: 060
     Dates: start: 20170616, end: 20170621
  66. ONDANSETRON [Concomitant]
     Active Substance: ONDANSETRON
     Dosage: 8MG (0.5DAY) (PREVIOUSLY 16 MG, 1X/DAY)
     Route: 042
     Dates: start: 20150527, end: 20150608
  67. ACETAMINOPHEN [Concomitant]
     Active Substance: ACETAMINOPHEN
  68. ZOMETA [Concomitant]
     Active Substance: ZOLEDRONIC ACID
     Dosage: 3 MG, UNK
     Route: 042
     Dates: start: 20151111
  69. SUDAFED NASAL DECONGESTANT MAXIMUM STRENGTH [Concomitant]
     Active Substance: PSEUDOEPHEDRINE HYDROCHLORIDE
     Dosage: 60 MG, AS NEEDED
     Route: 048
     Dates: start: 20160113
  70. PEGFILGRASTIM [Concomitant]
     Active Substance: PEGFILGRASTIM
     Dosage: 6 MG, UNK
     Route: 058
     Dates: start: 20150211, end: 20150709

REACTIONS (18)
  - Dermatitis acneiform [Recovered/Resolved with Sequelae]
  - Alopecia [Recovered/Resolved]
  - Anxiety [Recovered/Resolved]
  - Back pain [Recovered/Resolved]
  - Skin fissures [Recovered/Resolved]
  - Tooth abscess [Recovered/Resolved]
  - Tooth abscess [Not Recovered/Not Resolved]
  - Tooth infection [Recovered/Resolved]
  - Dry skin [Recovered/Resolved]
  - Blood calcium decreased [Recovered/Resolved]
  - Onychomadesis [Recovered/Resolved]
  - Facial pain [Recovered/Resolved]
  - Pain in jaw [Not Recovered/Not Resolved]
  - Neuropathy peripheral [Recovered/Resolved]
  - Joint stiffness [Recovered/Resolved]
  - Tooth loss [Recovered/Resolved]
  - Weight decreased [Recovered/Resolved]
  - Arthralgia [Recovered/Resolved]

NARRATIVE: CASE EVENT DATE: 20150325
